FAERS Safety Report 8805757 (Version 2)
Quarter: 2012Q4

REPORT INFORMATION
  Report Type: 
  Country: US (occurrence: US)
  Receive Date: 20120924
  Receipt Date: 20121205
  Transmission Date: 20130627
  Serious: Yes (Hospitalization)
  Sender: FDA-Public Use
  Company Number: US-US-EMD SERONO, INC.-7162038

PATIENT
  Age: 30 None
  Sex: Female

DRUGS (2)
  1. REBIF [Suspect]
     Indication: MULTIPLE SCLEROSIS
     Route: 058
     Dates: start: 20110629
  2. ORTHO TRI CYCLEN LO [Concomitant]
     Indication: CONTRACEPTION

REACTIONS (7)
  - Palpitations [Recovered/Resolved]
  - Dizziness [Recovered/Resolved]
  - Panic attack [Unknown]
  - Anxiety [Unknown]
  - Asthenia [Unknown]
  - Fatigue [Unknown]
  - Headache [Unknown]
